FAERS Safety Report 7990827-1 (Version None)
Quarter: 2011Q4

REPORT INFORMATION
  Report Type: 
  Country: None (occurrence: None)
  Receive Date: 20111219
  Receipt Date: 20111207
  Transmission Date: 20120403
  Serious: Yes (Hospitalization)
  Sender: FDA-Public Use
  Company Number: JP-ACTELION-A-CH2011-55038

PATIENT
  Sex: Female
  Weight: 54 kg

DRUGS (9)
  1. BERAPROST SODIUM [Concomitant]
  2. TELMISARTAN [Concomitant]
  3. TRACLEER [Suspect]
     Indication: PULMONARY ARTERIAL HYPERTENSION
     Dosage: 62.5 MG, BID
     Route: 048
     Dates: start: 20100210, end: 20100301
  4. SERRAPEPTASE [Concomitant]
  5. NIZATIDINE [Concomitant]
  6. MOSAPRIDE CITRATE [Concomitant]
  7. TERBINAFINE HCL [Concomitant]
  8. NIFEDIPINE [Concomitant]
  9. ETIZOLAM [Concomitant]

REACTIONS (8)
  - LIVER DISORDER [None]
  - ASPARTATE AMINOTRANSFERASE INCREASED [None]
  - GAMMA-GLUTAMYLTRANSFERASE INCREASED [None]
  - OEDEMA PERIPHERAL [None]
  - RESPIRATORY DISORDER [None]
  - BRAIN NATRIURETIC PEPTIDE INCREASED [None]
  - CARDIAC FAILURE [None]
  - BLOOD ALKALINE PHOSPHATASE INCREASED [None]
